FAERS Safety Report 24036726 (Version 1)
Quarter: 2024Q3

REPORT INFORMATION
  Report Type: Spontaneous
  Country: RU (occurrence: RU)
  Receive Date: 20240701
  Receipt Date: 20240701
  Transmission Date: 20241016
  Serious: Yes (Death, Hospitalization)
  Sender: AMERICAN REGENT
  Company Number: RU-AMERICAN REGENT INC-2024002510

PATIENT
  Age: 7 Decade
  Sex: Female
  Weight: 120 kg

DRUGS (3)
  1. FERINJECT [Suspect]
     Active Substance: FERRIC CARBOXYMALTOSE
     Indication: Iron deficiency anaemia
     Dosage: 1000 MG DILUTED IN 500 ML OF NACL (1000 MG,1 IN 1 TOTAL)
     Dates: start: 20240529, end: 20240529
  2. HEPA MERZ [Concomitant]
     Indication: Product used for unknown indication
     Dosage: UNK
     Route: 065
  3. REMAXOL [Concomitant]
     Indication: Product used for unknown indication
     Dosage: UNK
     Route: 065

REACTIONS (7)
  - Pneumonia [Fatal]
  - Anaemia of chronic disease [Fatal]
  - Asthenia [Fatal]
  - Leukocytosis [Fatal]
  - Haematemesis [Fatal]
  - Gastritis erosive [Fatal]
  - Erosive oesophagitis [Fatal]

NARRATIVE: CASE EVENT DATE: 20240601
